FAERS Safety Report 10599577 (Version 2)
Quarter: 2015Q1

REPORT INFORMATION
  Report Type: Spontaneous
  Country: US (occurrence: US)
  Receive Date: 20141121
  Receipt Date: 20150330
  Transmission Date: 20150720
  Serious: Yes (Hospitalization, Other)
  Sender: FDA-Public Use
  Company Number: US-UCBSA-2014018825

PATIENT
  Sex: Male
  Weight: 106.6 kg

DRUGS (9)
  1. ONFI [Suspect]
     Active Substance: CLOBAZAM
     Indication: CONVULSION PROPHYLAXIS
     Dosage: 10 MG, 2X/DAY (BID)
     Dates: start: 201202
  2. ZINC [Concomitant]
     Active Substance: ZINC\ZINC CHLORIDE
     Indication: SUPPLEMENTATION THERAPY
     Dosage: UNK
  3. BABY ASPIRIN [Concomitant]
     Active Substance: ASPIRIN
     Indication: CARDIOVASCULAR EVENT PROPHYLAXIS
     Dosage: 81 MG DAILY
     Route: 048
     Dates: start: 2008
  4. DILANTIN [Concomitant]
     Active Substance: PHENYTOIN
     Indication: CONVULSION PROPHYLAXIS
     Dosage: 250 MG AT NIGHT AND 200 MG IN AM
     Route: 048
     Dates: start: 200910
  5. CALCIUM [Concomitant]
     Active Substance: CALCIUM
     Indication: SUPPLEMENTATION THERAPY
     Dosage: UNK
  6. VITAMIN D [Concomitant]
     Active Substance: CHOLECALCIFEROL
     Indication: SUPPLEMENTATION THERAPY
     Dosage: UNK
  7. KEPPRA XR [Suspect]
     Active Substance: LEVETIRACETAM
     Indication: CONVULSION PROPHYLAXIS
     Dosage: 3000 MG DAILY
     Route: 048
     Dates: start: 20081118
  8. BABY ASPIRIN [Concomitant]
     Active Substance: ASPIRIN
     Dosage: 81 MG DAILY
     Route: 048
     Dates: start: 201411
  9. VIMPAT [Suspect]
     Active Substance: LACOSAMIDE
     Indication: CONVULSION PROPHYLAXIS
     Dosage: UNK
     Dates: start: 200910, end: 201107

REACTIONS (5)
  - Fluid retention [Not Recovered/Not Resolved]
  - Coronary artery occlusion [Recovered/Resolved]
  - Device occlusion [Recovering/Resolving]
  - Neuropathy peripheral [Not Recovered/Not Resolved]
  - Drug ineffective [Unknown]

NARRATIVE: CASE EVENT DATE: 2009
